FAERS Safety Report 7786922-2 (Version None)
Quarter: 2011Q3

REPORT INFORMATION
  Report Type: 
  Country: None (occurrence: None)
  Receive Date: 20110928
  Receipt Date: 20110928
  Transmission Date: 20111222
  Serious: No
  Sender: FDA-Public Use
  Company Number: None

PATIENT
  Age: 63 Year
  Sex: Female

DRUGS (6)
  1. MOTRIN [Concomitant]
  2. REVLIMID [Suspect]
     Indication: MULTIPLE MYELOMA
     Dosage: 10MG QDX21D/28D ORALLY
     Route: 048
  3. DILAUDID [Concomitant]
  4. DECADRON [Concomitant]
  5. CIPROFLOXACIN [Concomitant]
  6. ASPIRIN [Concomitant]

REACTIONS (1)
  - NEUTROPENIA [None]
